FAERS Safety Report 8574176-9 (Version None)
Quarter: 2012Q2

REPORT INFORMATION
  Report Type: 
  Country: None (occurrence: None)
  Receive Date: 20120423
  Receipt Date: 20100616
  Transmission Date: 20120825
  Serious: Yes (Hospitalization)
  Sender: FDA-Public Use
  Company Number: PHHY2010US30537

PATIENT
  Age: 23 Year
  Sex: Female

DRUGS (5)
  1. PENICILLIN VK [Concomitant]
  2. AMBIEN [Concomitant]
  3. FOLIC ACID [Concomitant]
  4. HYDREA [Concomitant]
  5. EXJADE [Suspect]
     Indication: SICKLE CELL ANAEMIA
     Dosage: 1250 MG, QD, ORAL
     Route: 048

REACTIONS (3)
  - URINARY TRACT INFECTION [None]
  - SICKLE CELL ANAEMIA WITH CRISIS [None]
  - PAIN [None]
